FAERS Safety Report 3728613 (Version 4)
Quarter: 2014Q2

REPORT INFORMATION
  Report Type: Spontaneous
  Country: JP (occurrence: None)
  Receive Date: 20011102
  Receipt Date: 20140402
  Transmission Date: 20141212
  Serious: Yes (Death, Life-Threatening, Hospitalization)
  Sender: FDA-Public Use
  Company Number: 2001004407-FJ

PATIENT
  Age: 15 Month
  Sex: Female
  Weight: 6 kg

DRUGS (6)
  1. PROGRAF [Suspect]
     Indication: LIVER TRANSPLANT
     Dosage: .2 MILLIGRAMS DAILY DOSE ORAL;.5 MILLIGRAMS- BID- TWICE A DAY ORAL
     Route: 048
     Dates: start: 19941103, end: 19950628
  2. PREDNISOLONE (PREDNISOLONE) [Suspect]
  3. SULFAMETHOXAZOLE/TRIMETHOPRIL [Concomitant]
  4. URSODEOXYCHOLIC ACID [Concomitant]
  5. MICONAZOLE [Concomitant]
  6. ALUMINUM/MAGNESIUM HYDROXIDE [Suspect]

REACTIONS (5)
  - Infectious mononucleosis [None]
  - Cholangitis [None]
  - Pseudomonas infection [None]
  - Candida infection [None]
  - Epstein-Barr virus infection [None]
